FAERS Safety Report 23571205 (Version 1)
Quarter: 2024Q1

REPORT INFORMATION
  Report Type: Spontaneous
  Country: CN (occurrence: CN)
  Receive Date: 20240227
  Receipt Date: 20240227
  Transmission Date: 20240409
  Serious: Yes (Other)
  Sender: FDA-Public Use
  Company Number: CN-OTSUKA-2024_004437

PATIENT
  Age: 92 Year
  Sex: Female
  Weight: 40 kg

DRUGS (1)
  1. TOLVAPTAN [Suspect]
     Active Substance: TOLVAPTAN
     Indication: Drug therapy
     Dosage: 15 MG, QD
     Route: 048
     Dates: start: 20240122, end: 20240205

REACTIONS (2)
  - Haemorrhage urinary tract [Recovering/Resolving]
  - Thrombocytopenia [Recovering/Resolving]

NARRATIVE: CASE EVENT DATE: 20240204
